FAERS Safety Report 5178663-5 (Version None)
Quarter: 2006Q4

REPORT INFORMATION
  Report Type: 
  Country: None (occurrence: None)
  Receive Date: 20061208
  Receipt Date: 20061201
  Transmission Date: 20070319
  Serious: Yes (Other)
  Sender: FDA-Public Use
  Company Number: CH-2006-036414

PATIENT
  Age: 20 Year
  Sex: Female
  Weight: 55.3 kg

DRUGS (1)
  1. YASMIN [Suspect]
     Indication: ORAL CONTRACEPTION
     Dosage: ORAL
     Route: 048
     Dates: start: 20040501, end: 20060901

REACTIONS (2)
  - BLINDNESS [None]
  - RETINAL DETACHMENT [None]
